FAERS Safety Report 4668656-6 (Version None)
Quarter: 2005Q2

REPORT INFORMATION
  Report Type: 
  Country: None (occurrence: None)
  Receive Date: 20050523
  Receipt Date: 20040825
  Transmission Date: 20051028
  Serious: No
  Sender: FDA-Public Use
  Company Number: US-GLAXOSMITHKLINE-A0523472A

PATIENT
  Age: 37 Year
  Sex: Female

DRUGS (4)
  1. FLOLAN [Suspect]
     Route: 042
     Dates: start: 20010601
  2. COUMADIN [Concomitant]
  3. TYLENOL (CAPLET) [Concomitant]
  4. PROTONIX [Concomitant]

REACTIONS (2)
  - PHARMACEUTICAL PRODUCT COMPLAINT [None]
  - THERAPEUTIC RESPONSE DECREASED [None]
